FAERS Safety Report 16004031 (Version 2)
Quarter: 2019Q1

REPORT INFORMATION
  Report Type: Report from Study
  Country: ES (occurrence: ES)
  Receive Date: 20190225
  Receipt Date: 20190226
  Transmission Date: 20190418
  Serious: Yes (Death, Hospitalization)
  Sender: FDA-Public Use
  Company Number: ES-ACCORD-109229

PATIENT
  Age: 85 Year
  Sex: Female

DRUGS (3)
  1. CEFUROXIME. [Suspect]
     Active Substance: CEFUROXIME
     Indication: RESPIRATORY TRACT INFECTION
     Route: 042
     Dates: start: 20150604, end: 20150615
  2. LEVOFLOXACIN/LEVOFLOXACIN MESYLATE [Suspect]
     Active Substance: LEVOFLOXACIN
     Indication: RESPIRATORY TRACT INFECTION
     Route: 042
     Dates: start: 20150525, end: 20150601
  3. ALLOPURINOL. [Suspect]
     Active Substance: ALLOPURINOL
     Indication: PRODUCT USED FOR UNKNOWN INDICATION
     Dates: start: 20150215, end: 20150615

REACTIONS (1)
  - Stevens-Johnson syndrome [Fatal]

NARRATIVE: CASE EVENT DATE: 20150615
